FAERS Safety Report 11336218 (Version 2)
Quarter: 2015Q4

REPORT INFORMATION
  Report Type: Report from Study
  Country: US (occurrence: US)
  Receive Date: 20150804
  Receipt Date: 20151222
  Transmission Date: 20160304
  Serious: Yes (Death, Hospitalization)
  Sender: FDA-Public Use
  Company Number: US-ACTELION-A-US2015-121702

PATIENT
  Age: 78 Year
  Sex: Female

DRUGS (5)
  1. REVATIO [Concomitant]
     Active Substance: SILDENAFIL CITRATE
  2. PROTONIX [Concomitant]
     Active Substance: PANTOPRAZOLE SODIUM
  3. LEXAPRO [Concomitant]
     Active Substance: ESCITALOPRAM OXALATE
  4. TRACLEER [Suspect]
     Active Substance: BOSENTAN
     Indication: PULMONARY ARTERIAL HYPERTENSION
     Dosage: UNK
     Route: 048
     Dates: start: 20130531, end: 20151125
  5. PROCARDIA [Concomitant]
     Active Substance: NIFEDIPINE

REACTIONS (7)
  - Fall [Unknown]
  - Laceration [Unknown]
  - Infection [Fatal]
  - Pneumonia [Unknown]
  - Transfusion [Unknown]
  - Sepsis [Unknown]
  - Anaemia [Unknown]
